FAERS Safety Report 21269309 (Version 1)
Quarter: 2022Q3

REPORT INFORMATION
  Report Type: Spontaneous
  Country: JP (occurrence: None)
  Receive Date: 20220830
  Receipt Date: 20220830
  Transmission Date: 20221026
  Serious: Yes (Other)
  Sender: FDA-Public Use
  Company Number: 2022A282030

PATIENT
  Age: 64 Year
  Sex: Female

DRUGS (8)
  1. DAPAGLIFLOZIN [Suspect]
     Active Substance: DAPAGLIFLOZIN
     Indication: Chronic kidney disease
     Route: 048
     Dates: start: 202202, end: 202208
  2. LIPITOR [Concomitant]
     Active Substance: ATORVASTATIN CALCIUM
     Dosage: DOSE UNKNOWN
     Route: 065
  3. BENIDIPINE HYDROCHLORIDE [Concomitant]
     Active Substance: BENIDIPINE HYDROCHLORIDE
     Dosage: DOSE UNKNOWN
     Route: 065
  4. CILNIDIPINE [Concomitant]
     Active Substance: CILNIDIPINE
     Dosage: 20.0MG UNKNOWN
     Route: 048
  5. AZILSARTAN KAMEDOXOMIL [Concomitant]
     Active Substance: AZILSARTAN KAMEDOXOMIL
     Dosage: DOSE UNKNOWN
     Route: 065
  6. ZETIA [Concomitant]
     Active Substance: EZETIMIBE
     Dosage: 10.0MG UNKNOWN
     Route: 048
  7. FEBUXOSTAT [Concomitant]
     Active Substance: FEBUXOSTAT
     Dosage: 1.0DF UNKNOWN
     Route: 065
  8. ICOSAPENT [Concomitant]
     Active Substance: ICOSAPENT
     Dosage: DOSE UNKNOWN
     Route: 065

REACTIONS (1)
  - Renal impairment [Not Recovered/Not Resolved]

NARRATIVE: CASE EVENT DATE: 20220101
